FAERS Safety Report 5477908-1 (Version None)
Quarter: 2007Q4

REPORT INFORMATION
  Report Type: 
  Country: None (occurrence: None)
  Receive Date: 20071005
  Receipt Date: 20070927
  Transmission Date: 20080405
  Serious: Yes (Other)
  Sender: FDA-Public Use
  Company Number: PHEH2007US12928

PATIENT
  Sex: Female

DRUGS (13)
  1. METOCLOPRAMIDE [Concomitant]
  2. DYNACIRC [Concomitant]
  3. PREVACID [Concomitant]
  4. LYRICA [Concomitant]
  5. ZETIA [Concomitant]
  6. PHENERGAN HCL [Concomitant]
  7. DEMEROL [Concomitant]
  8. METFORMIN HCL [Concomitant]
  9. LIPITOR [Concomitant]
  10. KLONOPIN [Concomitant]
  11. TRIAMTERENE [Concomitant]
  12. CYCLOBENZAPRINE HCL [Concomitant]
  13. ZELNORM [Suspect]
     Indication: IRRITABLE BOWEL SYNDROME
     Dosage: UNK, QD
     Route: 048
     Dates: start: 20030101, end: 20070301

REACTIONS (3)
  - CHEST PAIN [None]
  - MYOCARDIAL INFARCTION [None]
  - PAIN IN EXTREMITY [None]
